FAERS Safety Report 25519571 (Version 1)
Quarter: 2025Q3

REPORT INFORMATION
  Report Type: Spontaneous
  Country: MY (occurrence: MY)
  Receive Date: 20250704
  Receipt Date: 20250704
  Transmission Date: 20251020
  Serious: Yes (Other)
  Sender: DR REDDYS
  Company Number: MY-RDY-MYS/2025/06/009550

PATIENT
  Age: 49 Year
  Sex: Male
  Weight: 53 kg

DRUGS (12)
  1. DOXORUBICIN [Suspect]
     Active Substance: DOXORUBICIN
     Indication: Diffuse large B-cell lymphoma stage IV
  2. BLEOMYCIN [Concomitant]
     Active Substance: BLEOMYCIN SULFATE
     Indication: Diffuse large B-cell lymphoma stage IV
  3. VINBLASTINE [Concomitant]
     Active Substance: VINBLASTINE
     Indication: Diffuse large B-cell lymphoma stage IV
  4. DACARBAZINE [Concomitant]
     Active Substance: DACARBAZINE
     Indication: Diffuse large B-cell lymphoma stage IV
  5. ETOPOSIDE [Concomitant]
     Active Substance: ETOPOSIDE
     Indication: Diffuse large B-cell lymphoma stage IV
  6. CYCLOPHOSPHAMIDE [Concomitant]
     Active Substance: CYCLOPHOSPHAMIDE
     Indication: Diffuse large B-cell lymphoma stage IV
  7. VINCRISTINE [Concomitant]
     Active Substance: VINCRISTINE
     Indication: Diffuse large B-cell lymphoma stage IV
  8. PROCARBAZINE [Concomitant]
     Active Substance: PROCARBAZINE
     Indication: Diffuse large B-cell lymphoma stage IV
  9. PREDNISONE [Concomitant]
     Active Substance: PREDNISONE
     Indication: Diffuse large B-cell lymphoma stage IV
  10. RITUXIMAB [Concomitant]
     Active Substance: RITUXIMAB
     Indication: Diffuse large B-cell lymphoma stage IV
  11. IFOSFAMIDE [Concomitant]
     Active Substance: IFOSFAMIDE
     Indication: Diffuse large B-cell lymphoma stage IV
  12. CARBOPLATIN [Concomitant]
     Active Substance: CARBOPLATIN
     Indication: Diffuse large B-cell lymphoma stage IV

REACTIONS (1)
  - Drug ineffective for unapproved indication [Unknown]
